FAERS Safety Report 9666006 (Version 1)
Quarter: 2013Q4

REPORT INFORMATION
  Report Type: Report from Study
  Country: GB (occurrence: GB)
  Receive Date: 20131104
  Receipt Date: 20131104
  Transmission Date: 20140711
  Serious: Yes (Hospitalization)
  Sender: FDA-Public Use
  Company Number: GB-MERCK-1310GBR014665

PATIENT
  Age: 85 Year
  Sex: Female
  Weight: 83.5 kg

DRUGS (10)
  1. VORINOSTAT [Suspect]
     Dosage: 300 MG, BID
     Route: 048
     Dates: start: 20130919, end: 20131024
  2. AZACITIDINE [Suspect]
     Dosage: 155 MG, QD
     Route: 058
     Dates: start: 20130919, end: 20131024
  3. OMEPRAZOLE [Concomitant]
     Dosage: 20 MG, BID
     Route: 048
  4. ACYCLOVIR [Concomitant]
     Dosage: 200 MG, Q8H
     Route: 048
  5. FLUCONAZOLE [Concomitant]
     Dosage: 50 MG, QD
     Route: 048
  6. GLICLAZIDE [Concomitant]
     Dosage: 80 MG, BID
     Route: 048
  7. LEVOTHYROXINE SODIUM [Concomitant]
     Dosage: 150 MICROGRAM, ONCE IN THE MORNING
     Route: 048
  8. PRAVASTATIN SODIUM [Concomitant]
     Dosage: 40 MG, QD
     Route: 048
  9. METFORMIN [Concomitant]
     Dosage: 500 MG, BID
     Route: 048
  10. FUROSEMIDE [Concomitant]
     Dosage: 40 MG AT 8AM AND 2 PM
     Route: 048

REACTIONS (1)
  - Cardiac disorder [Not Recovered/Not Resolved]
